FAERS Safety Report 6931261-2 (Version None)
Quarter: 2010Q3

REPORT INFORMATION
  Report Type: 
  Country: None (occurrence: None)
  Receive Date: 20100816
  Receipt Date: 20100805
  Transmission Date: 20110219
  Serious: Yes (Hospitalization, Other)
  Sender: FDA-Public Use
  Company Number: 2010SP041859

PATIENT
  Age: 60 Year
  Sex: Female

DRUGS (2)
  1. REBETOL [Suspect]
     Indication: PRODUCT USED FOR UNKNOWN INDICATION
     Dosage: PO
     Route: 048
  2. INTRON A [Suspect]
     Indication: PRODUCT USED FOR UNKNOWN INDICATION
     Dosage: IM
     Route: 030

REACTIONS (2)
  - DEPRESSION [None]
  - EXTRADURAL HAEMATOMA [None]
